FAERS Safety Report 6166684-5 (Version None)
Quarter: 2009Q2

REPORT INFORMATION
  Report Type: 
  Country: None (occurrence: None)
  Receive Date: 20090423
  Receipt Date: 20090423
  Transmission Date: 20091009
  Serious: Yes (Other)
  Sender: FDA-Public Use
  Company Number: None

PATIENT
  Age: 35 Year
  Sex: Male
  Weight: 72.5755 kg

DRUGS (2)
  1. LEVAQUIN [Suspect]
     Indication: REITER'S SYNDROME
     Dosage: 500MG ONCE A DAY PO
     Route: 048
     Dates: start: 20090403, end: 20090406
  2. LEVAQUIN [Suspect]
     Indication: REITER'S SYNDROME
     Dosage: 500MG ONCE A DAY PO
     Route: 048
     Dates: start: 20090413, end: 20090423

REACTIONS (4)
  - DRUG INEFFECTIVE [None]
  - INCORRECT DOSE ADMINISTERED [None]
  - PATHOGEN RESISTANCE [None]
  - SUPERINFECTION [None]
